FAERS Safety Report 21601349 (Version 4)
Quarter: 2023Q1

REPORT INFORMATION
  Report Type: Report from Study
  Country: US (occurrence: US)
  Receive Date: 20221116
  Receipt Date: 20230327
  Transmission Date: 20230418
  Serious: Yes (Hospitalization)
  Sender: FDA-Public Use
  Company Number: US-002147023-NVSC2022US253594

PATIENT
  Sex: Male

DRUGS (1)
  1. KESIMPTA [Suspect]
     Active Substance: OFATUMUMAB
     Indication: Multiple sclerosis
     Dosage: 20 MG, Q2W
     Route: 058
     Dates: start: 20221012

REACTIONS (6)
  - Upper respiratory tract infection [Recovering/Resolving]
  - Chest pain [Recovering/Resolving]
  - Pain in extremity [Not Recovered/Not Resolved]
  - Intervertebral disc disorder [Unknown]
  - Peroneal nerve palsy [Not Recovered/Not Resolved]
  - Condition aggravated [Unknown]
